FAERS Safety Report 4372011-6 (Version None)
Quarter: 2004Q2

REPORT INFORMATION
  Report Type: 
  Country: None (occurrence: None)
  Receive Date: 20040602
  Receipt Date: 20040602
  Transmission Date: 20050107
  Serious: Yes (Other)
  Sender: FDA-Public Use
  Company Number: None

PATIENT
  Age: 39 Year
  Sex: Female
  Weight: 56.6996 kg

DRUGS (1)
  1. LEVAQUIN [Suspect]
     Indication: SINUSITIS
     Dosage: 1 PER DAY
     Dates: start: 20040422, end: 20040426

REACTIONS (10)
  - BURNING SENSATION [None]
  - DYSKINESIA [None]
  - FATIGUE [None]
  - HEART RATE INCREASED [None]
  - MUSCLE CRAMP [None]
  - MUSCLE SPASMS [None]
  - MUSCLE TWITCHING [None]
  - MYALGIA [None]
  - PYREXIA [None]
  - TREMOR [None]
